FAERS Safety Report 7490330-1 (Version None)
Quarter: 2011Q2

REPORT INFORMATION
  Report Type: 
  Country: None (occurrence: None)
  Receive Date: 20110519
  Receipt Date: 20110510
  Transmission Date: 20111010
  Serious: Yes (Hospitalization)
  Sender: FDA-Public Use
  Company Number: US-SOLVAY-00208003913

PATIENT
  Age: 819 Month
  Sex: Male
  Weight: 84.09 kg

DRUGS (16)
  1. CARBIDOPA AND LEVODOPA [Concomitant]
     Indication: PARKINSON'S DISEASE
     Dosage: DAILY DOSE:  UNKNOWN; UNIT DOSE: 25-400 MG
     Route: 048
  2. OXYBUTYNIN [Concomitant]
     Indication: PRODUCT USED FOR UNKNOWN INDICATION
     Dosage: DAILY DOSE:  UNKNOWN
     Route: 048
  3. TERAZOSIN HCL [Concomitant]
     Indication: PROSTATIC DISORDER
     Dosage: DAILY DOSE:  UNKNOWN
     Route: 048
  4. ANDROGEL [Suspect]
     Indication: BLOOD TESTOSTERONE DECREASED
     Dosage: DAILY DOSE: 5 GRAM(S); VIA PUMP
     Route: 062
     Dates: start: 20080818
  5. POTASSIUM CHLORIDE [Concomitant]
     Indication: ELECTROLYTE SUBSTITUTION THERAPY
     Dosage: DAILY DOSE:  UNKNOWN
     Route: 048
  6. NEXIUM [Concomitant]
     Indication: GASTROOESOPHAGEAL REFLUX DISEASE
     Dosage: DAILY DOSE:  UNKNOWN
     Route: 048
  7. FUROSEMIDE [Concomitant]
     Indication: FLUID RETENTION
     Dosage: DAILY DOSE:  UNKNOWN
     Route: 048
  8. ROPINIROLE [Concomitant]
     Indication: PARKINSON'S DISEASE
     Dosage: DAILY DOSE:  UNKNOWN
     Route: 048
  9. UNKNOWN BLOOD PRESSURE MEDICATION [Concomitant]
     Indication: HYPERTENSION
     Dosage: DAILY DOSE:  UNKNOWN
     Route: 048
  10. UNKNOWN PARKINSON'S MEDICATIONS [Concomitant]
     Indication: PARKINSON'S DISEASE
     Dosage: DAILY DOSE:  UNKNOWN
     Route: 048
  11. ANDROGEL [Suspect]
     Dosage: DAILY DOSE: 10 GRAM(S)
     Route: 062
     Dates: start: 20100101, end: 20100101
  12. ANDROGEL [Suspect]
     Dosage: DAILY DOSE: 5 GRAM(S)
     Route: 062
     Dates: start: 20100101
  13. PRAVASTATIN [Concomitant]
     Indication: BLOOD CHOLESTEROL INCREASED
     Dosage: DAILY DOSE:  UNKNOWN
     Route: 048
  14. STALEVO 100 [Concomitant]
     Indication: PARKINSON'S DISEASE
     Dosage: DAILY DOSE:  UNKNOWN
     Route: 048
  15. AVODART [Concomitant]
     Indication: PROSTATIC DISORDER
     Dosage: DAILY DOSE:  UNKNOWN
     Route: 048
  16. SPIRIVA [Concomitant]
     Indication: PRODUCT USED FOR UNKNOWN INDICATION
     Dosage: DAILY DOSE:  UNKNOWN
     Route: 055

REACTIONS (7)
  - URINARY TRACT INFECTION [None]
  - SCROTAL SWELLING [None]
  - DIZZINESS [None]
  - DYSARTHRIA [None]
  - FATIGUE [None]
  - GYNAECOMASTIA [None]
  - DRUG INEFFECTIVE [None]
